FAERS Safety Report 12673769 (Version 1)
Quarter: 2016Q3

REPORT INFORMATION
  Report Type: Spontaneous
  Country: US (occurrence: US)
  Receive Date: 20160822
  Receipt Date: 20160822
  Transmission Date: 20161109
  Serious: No
  Sender: FDA-Public Use
  Company Number: US-BAYER-2016-154190

PATIENT
  Age: 86 Year
  Sex: Female
  Weight: 72.11 kg

DRUGS (3)
  1. DORAL [Concomitant]
     Active Substance: QUAZEPAM
  2. QUERCETIN [Concomitant]
     Active Substance: QUERCETIN
  3. MIRALAX [Suspect]
     Active Substance: POLYETHYLENE GLYCOL 3350
     Indication: CONSTIPATION
     Dosage: 1 DF, UNK
     Route: 048
     Dates: start: 2014

REACTIONS (4)
  - Product use issue [None]
  - Circumstance or information capable of leading to medication error [None]
  - Diarrhoea [Recovered/Resolved]
  - Product use issue [None]

NARRATIVE: CASE EVENT DATE: 2014
